FAERS Safety Report 7749762-6 (Version None)
Quarter: 2011Q3

REPORT INFORMATION
  Report Type: 
  Country: None (occurrence: None)
  Receive Date: 20110914
  Receipt Date: 20110908
  Transmission Date: 20111222
  Serious: Yes (Other)
  Sender: FDA-Public Use
  Company Number: CA-ROCHE-801068

PATIENT
  Sex: Female
  Weight: 108.9 kg

DRUGS (12)
  1. RABEPRAZOLE SODIUM [Concomitant]
  2. METHOTREXATE [Concomitant]
     Route: 058
  3. CALCIUM CARBONATE [Concomitant]
  4. PLAQUENIL [Concomitant]
  5. PREDNISONE [Concomitant]
  6. VOLTAREN [Concomitant]
  7. FOLIC ACID [Concomitant]
  8. FERROUS SULFATE TAB [Concomitant]
  9. VITAMIN C + D [Concomitant]
  10. ALTACE [Concomitant]
  11. TOCILIZUMAB [Suspect]
     Indication: RHEUMATOID ARTHRITIS
     Route: 042
     Dates: start: 20110721
  12. CYMBALTA [Concomitant]

REACTIONS (3)
  - FATIGUE [None]
  - DYSPNOEA [None]
  - HAEMOGLOBIN DECREASED [None]
